FAERS Safety Report 25598292 (Version 2)
Quarter: 2025Q3

REPORT INFORMATION
  Report Type: Spontaneous
  Country: ZA (occurrence: ZA)
  Receive Date: 20250723
  Receipt Date: 20250813
  Transmission Date: 20251021
  Serious: Yes (Death, Other)
  Sender: CSL BEHRING
  Company Number: ZA-ROCHE-10000330904

PATIENT
  Age: 55 Year
  Sex: Female

DRUGS (1)
  1. MIRCERA [Suspect]
     Active Substance: METHOXY POLYETHYLENE GLYCOL-EPOETIN BETA
     Indication: Product used for unknown indication
     Route: 065

REACTIONS (44)
  - Death [Fatal]
  - Chronic kidney disease [Unknown]
  - Blood bicarbonate decreased [Unknown]
  - Blood urea increased [Unknown]
  - Blood creatinine increased [Unknown]
  - Haemoglobin decreased [Unknown]
  - Blood methaemoglobin present [Unknown]
  - PO2 decreased [Unknown]
  - Base excess decreased [Unknown]
  - Calcium ionised decreased [Unknown]
  - Oxygen saturation decreased [Unknown]
  - Blood calcium decreased [Unknown]
  - Blood phosphorus decreased [Unknown]
  - C-reactive protein increased [Unknown]
  - Blood magnesium decreased [Unknown]
  - Globulins increased [Unknown]
  - Blood alkaline phosphatase increased [Unknown]
  - Gamma-glutamyltransferase increased [Unknown]
  - Alanine aminotransferase decreased [Unknown]
  - Blood albumin decreased [Unknown]
  - Red cell distribution width increased [Unknown]
  - White blood cell count increased [Unknown]
  - Neutrophil count increased [Unknown]
  - Monocyte count increased [Unknown]
  - Immunoglobulins increased [Unknown]
  - Prothrombin time prolonged [Unknown]
  - Procalcitonin increased [Unknown]
  - Haematocrit decreased [Unknown]
  - Blood chloride decreased [Unknown]
  - Blood potassium decreased [Unknown]
  - Blood pH increased [Unknown]
  - PCO2 decreased [Unknown]
  - Eosinophil count increased [Unknown]
  - Myelocyte count increased [Unknown]
  - Blood potassium increased [Unknown]
  - Platelet count increased [Unknown]
  - Basophil count increased [Unknown]
  - Blood calcium increased [Unknown]
  - Transferrin decreased [Unknown]
  - Transferrin saturation increased [Unknown]
  - Serum ferritin increased [Unknown]
  - Blood parathyroid hormone increased [Unknown]
  - Blood sodium decreased [Unknown]
  - Protein total decreased [Unknown]

NARRATIVE: CASE EVENT DATE: 20250101
